FAERS Safety Report 10883471 (Version 3)
Quarter: 2015Q4

REPORT INFORMATION
  Report Type: Report from Study
  Country: BR (occurrence: BR)
  Receive Date: 20150303
  Receipt Date: 20151222
  Transmission Date: 20160304
  Serious: Yes (Hospitalization, Other)
  Sender: FDA-Public Use
  Company Number: BR-ROCHE-1546028

PATIENT
  Sex: Female
  Weight: 54 kg

DRUGS (7)
  1. PREDNISONE. [Concomitant]
     Active Substance: PREDNISONE
     Dosage: 4 TABLETS DAILY (2 IN MORNING AND 2 IN THE EVENING)
     Route: 065
  2. HYDROCHLOROTHIAZIDE. [Concomitant]
     Active Substance: HYDROCHLOROTHIAZIDE
  3. ARCOXIA [Concomitant]
     Active Substance: ETORICOXIB
  4. MABTHERA [Suspect]
     Active Substance: RITUXIMAB
     Indication: RHEUMATOID ARTHRITIS
     Route: 042
     Dates: start: 20140709, end: 20150304
  5. IBUPROFEN. [Concomitant]
     Active Substance: IBUPROFEN
     Route: 065
  6. METHOTREXATE [Concomitant]
     Active Substance: METHOTREXATE
  7. CAPTOPRIL. [Concomitant]
     Active Substance: CAPTOPRIL

REACTIONS (6)
  - Gastrointestinal disorder [Unknown]
  - Arthritis [Unknown]
  - Impaired healing [Unknown]
  - Bacterial infection [Unknown]
  - Intestinal perforation [Not Recovered/Not Resolved]
  - Pleural effusion [Recovering/Resolving]
